FAERS Safety Report 5235295-8 (Version None)
Quarter: 2007Q1

REPORT INFORMATION
  Report Type: 
  Country: None (occurrence: None)
  Receive Date: 20070207
  Receipt Date: 20070207
  Transmission Date: 20070707
  Serious: Yes (Life-Threatening, Hospitalization)
  Sender: FDA-Public Use
  Company Number: None

PATIENT
  Age: 54 Year
  Sex: Female
  Weight: 64 kg

DRUGS (15)
  1. AMBISOME [Suspect]
     Indication: CRYPTOCOCCOSIS
     Dosage: TOTAL OF 1280 MG     IV
     Route: 042
     Dates: start: 20061108, end: 20061111
  2. AMBISOME [Suspect]
     Indication: LARYNGITIS
     Dosage: TOTAL OF 1280 MG     IV
     Route: 042
     Dates: start: 20061108, end: 20061111
  3. FLUCYTOSINE PO  100 MG/KG/DAY DIVIDED Q6H [Suspect]
     Indication: CRYPTOCOCCOSIS
     Dosage: TOTAL OF 3200 MG  PO
     Route: 048
     Dates: start: 20061110, end: 20061111
  4. FLUCYTOSINE PO  100 MG/KG/DAY DIVIDED Q6H [Suspect]
     Indication: LARYNGITIS
     Dosage: TOTAL OF 3200 MG  PO
     Route: 048
     Dates: start: 20061110, end: 20061111
  5. NABUMETONE [Concomitant]
  6. IMIPRAMINE [Concomitant]
  7. ESCITALOPRAM [Concomitant]
  8. BACLOFEN [Concomitant]
  9. ACYCLOVIR [Concomitant]
  10. ESOMEPRAZOLE MAGNESIUM [Concomitant]
  11. CETIRIZINE HCL [Concomitant]
  12. TOLTERODINE [Concomitant]
  13. MONTELUKAST SODIUM [Concomitant]
  14. TIOTROPIUM [Concomitant]
  15. SALMETEROL [Concomitant]

REACTIONS (12)
  - CARDIOGENIC SHOCK [None]
  - CONGESTIVE CARDIOMYOPATHY [None]
  - CRYPTOCOCCOSIS [None]
  - HYPERHIDROSIS [None]
  - LARYNGITIS [None]
  - MENTAL STATUS CHANGES [None]
  - NAUSEA [None]
  - PATHOGEN RESISTANCE [None]
  - PLEURAL EFFUSION [None]
  - RESPIRATORY DISORDER [None]
  - SEPTIC SHOCK [None]
  - VENTRICULAR HYPOKINESIA [None]
